FAERS Safety Report 12457077 (Version 1)
Quarter: 2016Q2

REPORT INFORMATION
  Report Type: Spontaneous
  Country: GB (occurrence: GB)
  Receive Date: 20160610
  Receipt Date: 20160610
  Transmission Date: 20160815
  Serious: Yes (Hospitalization)
  Sender: FDA-Public Use
  Company Number: GB-BAYER-2016-108552

PATIENT
  Age: 70 Year
  Sex: Female
  Weight: 70.76 kg

DRUGS (2)
  1. CIPROFLOXACIN. [Suspect]
     Active Substance: CIPROFLOXACIN
     Indication: CYSTITIS
     Dosage: 500 MG, TOTAL
     Route: 048
  2. CIPROFLOXACIN. [Suspect]
     Active Substance: CIPROFLOXACIN
     Indication: PNEUMONIA

REACTIONS (12)
  - Condition aggravated [Unknown]
  - Myositis [Unknown]
  - Hyperhidrosis [Not Recovered/Not Resolved]
  - Sjogren^s syndrome [Unknown]
  - Nausea [Not Recovered/Not Resolved]
  - Mass [Unknown]
  - Fine motor skill dysfunction [Not Recovered/Not Resolved]
  - Abdominal pain upper [Not Recovered/Not Resolved]
  - Toxicity to various agents [Unknown]
  - Mobility decreased [Not Recovered/Not Resolved]
  - Sepsis [Unknown]
  - Balance disorder [Not Recovered/Not Resolved]

NARRATIVE: CASE EVENT DATE: 20151107
